FAERS Safety Report 6503129-7 (Version None)
Quarter: 2009Q4

REPORT INFORMATION
  Report Type: 
  Country: None (occurrence: None)
  Receive Date: 20091217
  Receipt Date: 20091216
  Transmission Date: 20100525
  Serious: Yes (Other)
  Sender: FDA-Public Use
  Company Number: US-ROXANE LABORATORIES, INC.-2009-RO-01272RO

PATIENT
  Sex: Male

DRUGS (11)
  1. PREDNISONE [Suspect]
     Route: 048
     Dates: start: 20090917
  2. BELATACEPT [Suspect]
     Indication: LIVER TRANSPLANT
     Route: 042
     Dates: start: 20081001, end: 20090930
  3. CELLCEPT [Suspect]
     Indication: LIVER TRANSPLANT
     Dosage: 3000 MG
     Route: 048
     Dates: start: 20081001, end: 20090930
  4. SIMULECT [Suspect]
     Indication: LIVER TRANSPLANT
     Route: 042
     Dates: start: 20081001, end: 20081005
  5. PLACEBO [Suspect]
     Indication: LIVER TRANSPLANT
     Dates: start: 20081001, end: 20081005
  6. MULTI-VITAMIN [Concomitant]
     Dates: start: 20081006
  7. CALCIUM + VITAMIN D [Concomitant]
     Dates: start: 20081006
  8. PEPCID [Concomitant]
     Dates: start: 20081018
  9. METOPROLOL TARTRATE [Concomitant]
     Dates: start: 20081104
  10. AMBIEN [Concomitant]
     Dates: start: 20090113
  11. BENADRYL [Concomitant]
     Dates: start: 20090906

REACTIONS (3)
  - ADENOCARCINOMA [None]
  - LIVER FUNCTION TEST ABNORMAL [None]
  - LIVER TRANSPLANT REJECTION [None]
